FAERS Safety Report 5640914-8 (Version None)
Quarter: 2008Q1

REPORT INFORMATION
  Report Type: 
  Country: None (occurrence: None)
  Receive Date: 20080227
  Receipt Date: 20080215
  Transmission Date: 20080703
  Serious: Yes (Other)
  Sender: FDA-Public Use
  Company Number: GB-GENENTECH-256406

PATIENT
  Sex: Male

DRUGS (1)
  1. MABTHERA [Suspect]
     Indication: DRUG USE FOR UNKNOWN INDICATION
     Dates: start: 20070101

REACTIONS (1)
  - MYOCARDIAL INFARCTION [None]
